FAERS Safety Report 10914325 (Version 1)
Quarter: 2015Q1

REPORT INFORMATION
  Report Type: Spontaneous
  Country: US (occurrence: None)
  Receive Date: 20150311
  Receipt Date: 20150311
  Transmission Date: 20150721
  Serious: Yes (Other)
  Sender: FDA-Public Use
  Company Number: FK201501106

PATIENT
  Age: 10 Year
  Sex: Female

DRUGS (3)
  1. MEROPENEM (MANUFACTURER UNKNOWN) (MEROPENEM) (MEROPENEM) [Suspect]
     Active Substance: MEROPENEM
     Indication: CYSTIC FIBROSIS
  2. VANCOMYCIN (MANUFACTURER UNKNOWN) (VANCOMYCIN) (VANCOMYCIN) [Suspect]
     Active Substance: VANCOMYCIN
     Indication: CYSTIC FIBROSIS
     Dosage: 400,000 UNITS OVER 1 HOUR EVERY 12 HOURS, INTRAVENOUS (NOT OTHERWISE SPECIFIED)
     Route: 042
  3. POLYMYXIN B (MANUFACTURER UNKNOWN) (POLYMYXIN B) (POLYMYXIN B) [Suspect]
     Active Substance: POLYMYXIN B
     Indication: CYSTIC FIBROSIS
     Dosage: 400,000 UNITS OVER 1 HOUR EVERY 12 HOURS,?(NOT OTHERWISE SPECIFIED)

REACTIONS (5)
  - Tardive dyskinesia [None]
  - Infusion site pain [None]
  - Dyskinesia [None]
  - Glossodynia [None]
  - Tremor [None]
